FAERS Safety Report 15861579 (Version 1)
Quarter: 2019Q1

REPORT INFORMATION
  Report Type: Spontaneous
  Country: US (occurrence: US)
  Receive Date: 20190123
  Receipt Date: 20190123
  Transmission Date: 20190417
  Serious: Yes (Other)
  Sender: FDA-Public Use
  Company Number: None

PATIENT
  Age: 59 Year
  Sex: Female
  Weight: 111.6 kg

DRUGS (22)
  1. IBRANCE [Suspect]
     Active Substance: PALBOCICLIB
     Indication: BREAST CANCER
     Route: 048
     Dates: start: 20181129
  2. ASPIRIN. [Concomitant]
     Active Substance: ASPIRIN
  3. BENEFIBER [Concomitant]
     Active Substance: STARCH, WHEAT
  4. COLACE [Concomitant]
     Active Substance: DOCUSATE SODIUM
  5. GENERLAC [Concomitant]
     Active Substance: LACTULOSE
  6. LIBRAX [Concomitant]
     Active Substance: CHLORDIAZEPOXIDE HYDROCHLORIDE\CLIDINIUM BROMIDE
  7. MELOXICAM. [Concomitant]
     Active Substance: MELOXICAM
  8. EYLEA [Concomitant]
     Active Substance: AFLIBERCEPT
  9. FUROSEMIDE. [Concomitant]
     Active Substance: FUROSEMIDE
  10. GABAPENTIN. [Concomitant]
     Active Substance: GABAPENTIN
  11. GLIPIZIDE. [Concomitant]
     Active Substance: GLIPIZIDE
  12. PAROXETINE. [Concomitant]
     Active Substance: PAROXETINE
  13. DOXYCYCLINE. [Concomitant]
     Active Substance: DOXYCYCLINE
  14. LUTEIN [Concomitant]
     Active Substance: LUTEIN
  15. OMEPRAZOLE. [Concomitant]
     Active Substance: OMEPRAZOLE
  16. CHROMIUM PICOLINATE MEGA [Concomitant]
  17. COQ10 [Concomitant]
     Active Substance: UBIDECARENONE
  18. MORPHINE [Concomitant]
     Active Substance: MORPHINE
  19. PROCHLORPERAZINE. [Concomitant]
     Active Substance: PROCHLORPERAZINE
  20. EYEVITES [Concomitant]
  21. LETROZOLE. [Concomitant]
     Active Substance: LETROZOLE
  22. PROAIR HFA [Concomitant]
     Active Substance: ALBUTEROL SULFATE

REACTIONS (1)
  - Skin ulcer [None]
